FAERS Safety Report 15391702 (Version 1)
Quarter: 2018Q3

REPORT INFORMATION
  Report Type: Spontaneous
  Country: US (occurrence: US)
  Receive Date: 20180910
  Receipt Date: 20180910
  Transmission Date: 20181010
  Serious: Yes (Other)
  Sender: FDA-Public Use
  Company Number: None

PATIENT
  Age: 41 Year
  Sex: Female
  Weight: 62.1 kg

DRUGS (3)
  1. MULTIVITAMIN [Concomitant]
     Active Substance: VITAMINS
  2. LIALDA [Concomitant]
     Active Substance: MESALAMINE
  3. FLUTICASONE PROPIONATE NASAL SPRAY USP 50 MCG [Suspect]
     Active Substance: FLUTICASONE PROPIONATE
     Indication: HYPERSENSITIVITY
     Dosage: ?          OTHER STRENGTH:MCG;QUANTITY:2 SPRAY(S);?
     Route: 055

REACTIONS (1)
  - Nasal septum perforation [None]

NARRATIVE: CASE EVENT DATE: 20180908
